FAERS Safety Report 6696462-X (Version None)
Quarter: 2010Q2

REPORT INFORMATION
  Report Type: 
  Country: None (occurrence: None)
  Receive Date: 20100426
  Receipt Date: 20100415
  Transmission Date: 20101027
  Serious: Yes (Disabling)
  Sender: FDA-Public Use
  Company Number: CL-ROCHE-698081

PATIENT
  Sex: Male
  Weight: 66 kg

DRUGS (2)
  1. CAPECITABINE [Suspect]
     Indication: COLON CANCER
     Dosage: FREQUENCY 1500 MG IN THE MORNING AND 1000 MG IN THE AFTERNOON
     Route: 048
     Dates: start: 20091001
  2. OXALIPLATIN [Suspect]
     Indication: COLON CANCER
     Route: 042
     Dates: start: 20091001

REACTIONS (6)
  - DEAFNESS [None]
  - DIARRHOEA [None]
  - DRY EYE [None]
  - EYE DISCHARGE [None]
  - OCULAR ICTERUS [None]
  - SKIN EXFOLIATION [None]
